FAERS Safety Report 22049958 (Version 1)
Quarter: 2023Q1

REPORT INFORMATION
  Report Type: Spontaneous
  Country: US (occurrence: None)
  Receive Date: 20230228
  Receipt Date: 20230228
  Transmission Date: 20230417
  Serious: Yes (Hospitalization)
  Sender: FDA-Public Use
  Company Number: None

PATIENT
  Age: 34 Year
  Sex: Female
  Weight: 83.91 kg

DRUGS (5)
  1. LILETTA [Suspect]
     Active Substance: LEVONORGESTREL
  2. LITHIUM [Concomitant]
     Active Substance: LITHIUM
  3. LAMICTAL [Concomitant]
     Active Substance: LAMOTRIGINE
  4. Iiletta [Concomitant]
  5. VITAMIN D [Concomitant]
     Active Substance: VITAMIN D NOS

REACTIONS (5)
  - Suicidal ideation [None]
  - Vaginal haemorrhage [None]
  - Affective disorder [None]
  - Condition aggravated [None]
  - Psychiatric symptom [None]

NARRATIVE: CASE EVENT DATE: 20230220
